FAERS Safety Report 19152376 (Version 1)
Quarter: 2021Q2

REPORT INFORMATION
  Report Type: Spontaneous
  Country: US (occurrence: US)
  Receive Date: 20210416
  Receipt Date: 20210416
  Transmission Date: 20210717
  Serious: No
  Sender: FDA-Public Use
  Company Number: None

PATIENT
  Age: 63 Year
  Sex: Male

DRUGS (4)
  1. ATORVASTATIN 80MG [Concomitant]
     Active Substance: ATORVASTATIN
  2. HUMIRA [Suspect]
     Active Substance: ADALIMUMAB
     Indication: RHEUMATOID ARTHRITIS
     Dosage: ?          OTHER FREQUENCY:ONCE WEEKLY;?
     Route: 058
     Dates: end: 20210415
  3. OMEPRAZOLE 40MG [Concomitant]
     Active Substance: OMEPRAZOLE
  4. LOSARTAN 100MG [Concomitant]
     Active Substance: LOSARTAN

REACTIONS (2)
  - Arthritis [None]
  - Drug ineffective [None]

NARRATIVE: CASE EVENT DATE: 20210415
